FAERS Safety Report 17136579 (Version 3)
Quarter: 2020Q1

REPORT INFORMATION
  Report Type: Spontaneous
  Country: BE (occurrence: BE)
  Receive Date: 20191210
  Receipt Date: 20200129
  Transmission Date: 20200409
  Serious: Yes (Life-Threatening, Hospitalization, Other)
  Sender: FDA-Public Use
  Company Number: BE-ASTRAZENECA-2019SF76705

PATIENT
  Age: 22177 Day
  Sex: Female
  Weight: 97 kg

DRUGS (3)
  1. FORXIGA [Suspect]
     Active Substance: DAPAGLIFLOZIN
     Indication: TYPE 2 DIABETES MELLITUS
     Dosage: 10.0MG UNKNOWN
     Route: 048
     Dates: start: 20190204, end: 20190902
  2. FORXIGA [Suspect]
     Active Substance: DAPAGLIFLOZIN
     Indication: TYPE 2 DIABETES MELLITUS
     Dosage: 10.0MG UNKNOWN
     Route: 048
     Dates: end: 20191001
  3. CRESTOR [Suspect]
     Active Substance: ROSUVASTATIN CALCIUM
     Route: 048

REACTIONS (18)
  - Myalgia [Unknown]
  - Acute kidney injury [Recovering/Resolving]
  - Productive cough [Unknown]
  - Cardiac failure [Unknown]
  - Splenomegaly [Unknown]
  - Abdominal distension [Unknown]
  - Renal failure [Unknown]
  - Urosepsis [Unknown]
  - Hepatomegaly [Unknown]
  - Vulvovaginal mycotic infection [Recovered/Resolved]
  - Pyelonephritis acute [Unknown]
  - Cystitis [Unknown]
  - Orthopnoea [Unknown]
  - Mobility decreased [Unknown]
  - Escherichia urinary tract infection [Recovered/Resolved]
  - Dyspnoea [Unknown]
  - Urinary tract infection [Recovering/Resolving]
  - Cardiomegaly [Unknown]

NARRATIVE: CASE EVENT DATE: 20190302
